FAERS Safety Report 9704865 (Version 3)
Quarter: 2014Q1

REPORT INFORMATION
  Report Type: Report from Study
  Country: US (occurrence: US)
  Receive Date: 20131122
  Receipt Date: 20140210
  Transmission Date: 20141002
  Serious: Yes (Hospitalization, Other)
  Sender: FDA-Public Use
  Company Number: US-ABBVIE-13P-163-1149345-00

PATIENT
  Age: 47 Year
  Sex: Male
  Weight: 163.44 kg

DRUGS (16)
  1. HUMIRA [Suspect]
     Indication: PSORIASIS
     Route: 058
     Dates: start: 20130819, end: 20130925
  2. HUMIRA [Suspect]
     Indication: PSORIASIS
  3. PNEUMOCOCCAL VACCINE [Suspect]
     Indication: IMMUNISATION
  4. INFLUENZA [Suspect]
     Indication: IMMUNISATION
  5. ALBUTEROL [Concomitant]
     Indication: CHRONIC OBSTRUCTIVE PULMONARY DISEASE
     Route: 055
  6. ALBUTEROL [Concomitant]
     Indication: ASTHMA
  7. ALBUTEROL NEBULIZER [Concomitant]
     Indication: CHRONIC OBSTRUCTIVE PULMONARY DISEASE
  8. ALBUTEROL NEBULIZER [Concomitant]
     Indication: ASTHMA
  9. ZAFIRLUKAST [Concomitant]
     Indication: ASTHMA
  10. BABY ASPIRIN [Concomitant]
     Indication: PRODUCT USED FOR UNKNOWN INDICATION
  11. DALIRESP [Concomitant]
     Indication: ASTHMA
  12. LISINOPRIL [Concomitant]
     Indication: HYPERTENSION
  13. AMLODIPINE [Concomitant]
     Indication: HYPERTENSION
  14. FLUTICASONE PROPIONATE [Concomitant]
     Indication: ASTHMA
  15. FLUTICASONE PROPIONATE [Concomitant]
     Indication: HYPERSENSITIVITY
  16. BENADRYL [Concomitant]
     Indication: PRURITUS

REACTIONS (5)
  - Lung disorder [Not Recovered/Not Resolved]
  - Dyspnoea [Not Recovered/Not Resolved]
  - Drug dose omission [Recovered/Resolved]
  - Oedema [Not Recovered/Not Resolved]
  - Local swelling [Not Recovered/Not Resolved]
